FAERS Safety Report 6478364-7 (Version None)
Quarter: 2009Q4

REPORT INFORMATION
  Report Type: 
  Country: None (occurrence: None)
  Receive Date: 20091207
  Receipt Date: 20091202
  Transmission Date: 20100525
  Serious: Yes (Hospitalization)
  Sender: FDA-Public Use
  Company Number: GB-TEVA-172716ISR

PATIENT
  Age: 12 Year
  Sex: Male
  Weight: 56 kg

DRUGS (1)
  1. ONDANSETRON [Suspect]
     Indication: PROCEDURAL NAUSEA
     Route: 042
     Dates: start: 20080501, end: 20080509

REACTIONS (1)
  - MYOCLONUS [None]
